FAERS Safety Report 12195015 (Version 1)
Quarter: 2016Q1

REPORT INFORMATION
  Report Type: Spontaneous
  Country: US (occurrence: None)
  Receive Date: 20160318
  Receipt Date: 20160318
  Transmission Date: 20160526
  Serious: Yes (Other)
  Sender: FDA-Public Use
  Company Number: None

PATIENT
  Age: 18 Year
  Sex: Male
  Weight: 71.6 kg

DRUGS (1)
  1. XOLAIR [Suspect]
     Active Substance: OMALIZUMAB
     Indication: ASTHMA
     Route: 058
     Dates: start: 20151117, end: 20160308

REACTIONS (10)
  - Pyrexia [None]
  - Lip swelling [None]
  - Eye swelling [None]
  - Influenza [None]
  - Respiratory syncytial virus infection [None]
  - Wheezing [None]
  - Myalgia [None]
  - Cough [None]
  - Arthralgia [None]
  - Swelling face [None]

NARRATIVE: CASE EVENT DATE: 20160316
